FAERS Safety Report 10760128 (Version 4)
Quarter: 2015Q1

REPORT INFORMATION
  Report Type: Spontaneous
  Country: FR (occurrence: FR)
  Receive Date: 20150204
  Receipt Date: 20150223
  Transmission Date: 20150721
  Serious: Yes (Hospitalization)
  Sender: FDA-Public Use
  Company Number: FR-009507513-1412FRA010716

PATIENT
  Age: 68 Year
  Sex: Male
  Weight: 174 kg

DRUGS (3)
  1. TEMODAL [Suspect]
     Active Substance: TEMOZOLOMIDE
     Dosage: UNK
     Route: 048
     Dates: start: 20140720
  2. TEMODAL [Suspect]
     Active Substance: TEMOZOLOMIDE
     Indication: GLIOBLASTOMA
     Dosage: 700 MG (5 TABLETS), ONCE, SECOND COURSE.
     Route: 048
     Dates: start: 20141219, end: 20141219
  3. CARMUSTINE [Concomitant]
     Active Substance: CARMUSTINE
     Indication: GLIOBLASTOMA
     Dosage: UNK
     Dates: start: 201411

REACTIONS (4)
  - Lymphopenia [Unknown]
  - Accidental overdose [Recovered/Resolved]
  - Medication error [Recovered/Resolved]
  - Thrombocytopenia [Unknown]

NARRATIVE: CASE EVENT DATE: 20141219
